FAERS Safety Report 6695057-1 (Version None)
Quarter: 2010Q2

REPORT INFORMATION
  Report Type: 
  Country: None (occurrence: None)
  Receive Date: 20100423
  Receipt Date: 20100413
  Transmission Date: 20101027
  Serious: Yes (Hospitalization)
  Sender: FDA-Public Use
  Company Number: PHHY2010MX23209

PATIENT
  Sex: Female

DRUGS (10)
  1. RASILEZ [Suspect]
     Indication: HYPERTENSION
     Dosage: 1 TABLET (300 MG ) PER DAY
     Route: 048
     Dates: end: 20100409
  2. HYZAAR [Concomitant]
  3. ISCOVER [Concomitant]
  4. TRITACE [Concomitant]
  5. ROSUVASTATIN [Concomitant]
  6. ESTROGENS [Concomitant]
  7. ASPIRIN [Concomitant]
  8. NIMOTOP [Concomitant]
  9. ARCOXIA [Concomitant]
  10. ACTONEL [Concomitant]

REACTIONS (1)
  - CARDIAC PACEMAKER INSERTION [None]
